FAERS Safety Report 13815356 (Version 1)
Quarter: 2017Q3

REPORT INFORMATION
  Report Type: Spontaneous
  Country: US (occurrence: US)
  Receive Date: 20170729
  Receipt Date: 20170729
  Transmission Date: 20171127
  Serious: Yes (Other)
  Sender: FDA-Public Use
  Company Number: None

PATIENT
  Age: 35 Year
  Sex: Female
  Weight: 65.25 kg

DRUGS (11)
  1. SULFASALAZINE. [Concomitant]
     Active Substance: SULFASALAZINE
  2. PROBIOTIC [Concomitant]
     Active Substance: PROBIOTICS NOS
  3. NATURE-THROID [Concomitant]
     Active Substance: THYROID, PORCINE
  4. FISH OIL [Concomitant]
     Active Substance: FISH OIL
  5. WELLBUTRIN [Concomitant]
     Active Substance: BUPROPION HYDROCHLORIDE
  6. NORCO [Concomitant]
     Active Substance: ACETAMINOPHEN\HYDROCODONE BITARTRATE
  7. TURMERIC [Concomitant]
     Active Substance: HERBALS\TURMERIC
  8. MOTRIN [Concomitant]
     Active Substance: IBUPROFEN
  9. DULOXETINE HCL [Suspect]
     Active Substance: DULOXETINE HYDROCHLORIDE
     Indication: DEPRESSION
     Route: 048
     Dates: start: 20170727, end: 20170727
  10. STELARA [Concomitant]
     Active Substance: USTEKINUMAB
  11. CYMBALTA [Concomitant]
     Active Substance: DULOXETINE HYDROCHLORIDE

REACTIONS (7)
  - Insomnia [None]
  - Fatigue [None]
  - Confusional state [None]
  - Heart rate increased [None]
  - Cold sweat [None]
  - Serotonin syndrome [None]
  - Blood pressure increased [None]

NARRATIVE: CASE EVENT DATE: 20170727
